FAERS Safety Report 7097741-7 (Version None)
Quarter: 2010Q4

REPORT INFORMATION
  Report Type: 
  Country: None (occurrence: None)
  Receive Date: 20101104
  Receipt Date: 20101020
  Transmission Date: 20110411
  Serious: Yes (Life-Threatening, Hospitalization)
  Sender: FDA-Public Use
  Company Number: AUR-APU-2010-02669

PATIENT
  Age: 48 Year
  Sex: Male

DRUGS (1)
  1. AMOXICILLIN [Suspect]
     Indication: PHARYNGITIS
     Dosage: 2G - DAILY -

REACTIONS (7)
  - ACUTE CORONARY SYNDROME [None]
  - ACUTE MYOCARDIAL INFARCTION [None]
  - DEVICE OCCLUSION [None]
  - KOUNIS SYNDROME [None]
  - PRURITUS [None]
  - THROMBOSIS IN DEVICE [None]
  - URTICARIA [None]
